FAERS Safety Report 4592409-0 (Version None)
Quarter: 2005Q1

REPORT INFORMATION
  Report Type: 
  Country: None (occurrence: None)
  Receive Date: 20050228
  Receipt Date: 20050114
  Transmission Date: 20050727
  Serious: No
  Sender: FDA-Public Use
  Company Number: US-BRISTOL-MYERS SQUIBB COMPANY-12827937

PATIENT
  Sex: Female

DRUGS (2)
  1. ABILIFY [Suspect]
     Indication: BIPOLAR DISORDER
     Dosage: 90-100 MG/DAY
     Route: 048
  2. DIVALPROEX SODIUM [Concomitant]
     Indication: BIPOLAR DISORDER

REACTIONS (2)
  - MANIA [None]
  - PRESCRIBED OVERDOSE [None]
